FAERS Safety Report 9499664 (Version 1)
Quarter: 2013Q3

REPORT INFORMATION
  Report Type: Spontaneous
  Country: GB (occurrence: None)
  Receive Date: 20130903
  Receipt Date: 20130903
  Transmission Date: 20140515
  Serious: Yes (Other)
  Sender: FDA-Public Use
  Company Number: AUR-APL-2013-07144

PATIENT
  Age: 73 Year
  Sex: Female
  Weight: 86 kg

DRUGS (2)
  1. ALENDRONIC ACID (ALENDRONIC ACID) [Suspect]
     Dosage: 10 MG (70 MG, 1 IN 1 WK), ORAL
     Route: 048
     Dates: start: 20120619
  2. RISEDRONATE [Suspect]
     Route: 048
     Dates: start: 201207

REACTIONS (3)
  - Myalgia [None]
  - Asthenia [None]
  - Fatigue [None]
